FAERS Safety Report 17163926 (Version 2)
Quarter: 2020Q2

REPORT INFORMATION
  Report Type: Spontaneous
  Country: GB (occurrence: GB)
  Receive Date: 20191217
  Receipt Date: 20200430
  Transmission Date: 20200713
  Serious: Yes (Other)
  Sender: FDA-Public Use
  Company Number: NVSC2019GB064483

PATIENT
  Age: 61 Year
  Sex: Male
  Weight: 73 kg

DRUGS (4)
  1. CO-AMOXICLAV 1000 MG/200 MG POWDER FOR SOLUTION FOR INJECTION/INFUSION [Suspect]
     Active Substance: AMOXICILLIN\CLAVULANATE POTASSIUM
     Indication: PRODUCT USED FOR UNKNOWN INDICATION
     Dosage: 3 DF, QD
     Route: 048
     Dates: start: 20190722, end: 20190729
  2. AMLODIPINE [Concomitant]
     Active Substance: AMLODIPINE BESYLATE
     Indication: PRODUCT USED FOR UNKNOWN INDICATION
     Dosage: 1 DF, QD
     Route: 065
     Dates: start: 20181206
  3. ATORVASTATIN [Concomitant]
     Active Substance: ATORVASTATIN
     Indication: PRODUCT USED FOR UNKNOWN INDICATION
     Dosage: 1 DF, QD
     Route: 065
     Dates: start: 20181210
  4. CO-AMOXICLAV 1000 MG/200 MG POWDER FOR SOLUTION FOR INJECTION/INFUSION [Suspect]
     Active Substance: AMOXICILLIN\CLAVULANATE POTASSIUM
     Dosage: UNK
     Route: 048
     Dates: start: 20190905

REACTIONS (2)
  - Liver function test abnormal [Recovered/Resolved]
  - Liver function test abnormal [Recovered/Resolved]

NARRATIVE: CASE EVENT DATE: 20190905
